FAERS Safety Report 23637318 (Version 2)
Quarter: 2025Q1

REPORT INFORMATION
  Report Type: Spontaneous
  Country: US (occurrence: US)
  Receive Date: 20240315
  Receipt Date: 20250124
  Transmission Date: 20250408
  Serious: Yes (Other)
  Sender: MYLAN
  Company Number: US-MYLANLABS-2024M1022731

PATIENT
  Age: 82 Year
  Sex: Female
  Weight: 77.11 kg

DRUGS (2)
  1. VALSARTAN [Suspect]
     Active Substance: VALSARTAN
     Indication: Hypertension
     Dosage: 80 MILLIGRAM, QD (ONCE A DAY)
     Route: 048
     Dates: start: 20150226, end: 20180103
  2. VALSARTAN [Suspect]
     Active Substance: VALSARTAN
     Indication: Chronic left ventricular failure

REACTIONS (1)
  - Bladder cancer [Recovered/Resolved]

NARRATIVE: CASE EVENT DATE: 20190613
